FAERS Safety Report 5879407-1 (Version None)
Quarter: 2008Q3

REPORT INFORMATION
  Report Type: 
  Country: None (occurrence: None)
  Receive Date: 20080912
  Receipt Date: 20080910
  Transmission Date: 20090109
  Serious: Yes (Hospitalization)
  Sender: FDA-Public Use
  Company Number: B0535393A

PATIENT
  Age: 91 Year
  Sex: Female

DRUGS (9)
  1. ARIXTRA [Suspect]
     Indication: PHLEBITIS
     Dosage: 2.5MG PER DAY
     Route: 058
     Dates: start: 20080724, end: 20080728
  2. KARDEGIC [Suspect]
     Indication: DRUG USE FOR UNKNOWN INDICATION
     Route: 048
     Dates: end: 20080728
  3. DIFFU K [Concomitant]
     Route: 065
     Dates: end: 20080728
  4. INIPOMP [Concomitant]
     Route: 048
  5. LASIX [Concomitant]
     Route: 048
     Dates: end: 20080728
  6. COVERSYL [Concomitant]
     Route: 048
     Dates: end: 20080728
  7. CORDARONE [Concomitant]
     Route: 048
  8. ALDACTONE [Concomitant]
     Route: 048
     Dates: end: 20080728
  9. HALDOL [Concomitant]
     Indication: AGITATION
     Route: 048
     Dates: end: 20080728

REACTIONS (4)
  - ANAEMIA [None]
  - DEHYDRATION [None]
  - HAEMATOMA [None]
  - RENAL FAILURE [None]
